FAERS Safety Report 20653565 (Version 1)
Quarter: 2022Q1

REPORT INFORMATION
  Report Type: Spontaneous
  Country: US (occurrence: US)
  Receive Date: 20220330
  Receipt Date: 20220330
  Transmission Date: 20220423
  Serious: No
  Sender: FDA-Public Use
  Company Number: US-PFIZER INC-202200354687

PATIENT
  Age: 83 Year
  Sex: Male
  Weight: 97.506 kg

DRUGS (7)
  1. NORVASC [Suspect]
     Active Substance: AMLODIPINE BESYLATE
     Dosage: UNK
     Dates: end: 20220218
  2. TYVASO [Suspect]
     Active Substance: TREPROSTINIL
     Indication: Pulmonary arterial hypertension
     Dosage: UNK
     Dates: start: 20220214
  3. TYVASO [Suspect]
     Active Substance: TREPROSTINIL
     Dosage: 18-54 UG, 4X/DAY (3-9 BREATHS, FOUR TIMES A DAY (QID) VIA INHALATION (IH) ROUTE)
     Dates: start: 202202
  4. TYVASO [Suspect]
     Active Substance: TREPROSTINIL
     Dosage: 18 UG, 4X/DAY (PER TREATMENT, FOUR TIMES A DAY (QID) VIA INHALATION (IH) ROUTE))
     Dates: start: 202202
  5. ELIQUIS [Concomitant]
     Active Substance: APIXABAN
     Dosage: UNK
  6. TADALAFIL [Concomitant]
     Active Substance: TADALAFIL
     Dosage: UNK
  7. DILTIAZEM HYDROCHLORIDE [Concomitant]
     Active Substance: DILTIAZEM HYDROCHLORIDE
     Dosage: UNK

REACTIONS (3)
  - Hypotension [Unknown]
  - Throat irritation [Recovering/Resolving]
  - Dizziness exertional [Unknown]

NARRATIVE: CASE EVENT DATE: 20220201
